FAERS Safety Report 15882934 (Version 2)
Quarter: 2019Q1

REPORT INFORMATION
  Report Type: Report from Study
  Country: US (occurrence: US)
  Receive Date: 20190129
  Receipt Date: 20190301
  Transmission Date: 20190417
  Serious: Yes (Other)
  Sender: FDA-Public Use
  Company Number: US-SAKK-2019SA020044AA

PATIENT
  Age: 66 Year
  Sex: Male

DRUGS (1)
  1. INSULIN GLARGINE [Suspect]
     Active Substance: INSULIN GLARGINE
     Indication: TYPE 2 DIABETES MELLITUS
     Dosage: IN THE MORNING AND AT NIGHT, 70 U, BID
     Route: 058

REACTIONS (3)
  - Asthenia [Unknown]
  - Cardiac operation [Unknown]
  - Product use issue [Unknown]

NARRATIVE: CASE EVENT DATE: 20190104
